FAERS Safety Report 11490587 (Version 3)
Quarter: 2015Q4

REPORT INFORMATION
  Report Type: Report from Study
  Country: US (occurrence: US)
  Receive Date: 20150910
  Receipt Date: 20151109
  Transmission Date: 20160304
  Serious: Yes (Other)
  Sender: FDA-Public Use
  Company Number: US-ALEXION PHARMACEUTICALS INC-A201503384

PATIENT

DRUGS (3)
  1. SOLIRIS [Suspect]
     Active Substance: ECULIZUMAB
     Dosage: 600 MG, UNK
     Route: 042
  2. SOLIRIS [Suspect]
     Active Substance: ECULIZUMAB
     Indication: PAROXYSMAL NOCTURNAL HAEMOGLOBINURIA
     Dosage: 600 MG, QW
     Route: 042
  3. SOLIRIS [Suspect]
     Active Substance: ECULIZUMAB
     Dosage: 900 MG, UNK
     Route: 042
     Dates: start: 20150819

REACTIONS (21)
  - Pyrexia [Unknown]
  - Hypoxia [Unknown]
  - Vomiting [Not Recovered/Not Resolved]
  - Hypoglycaemia [Unknown]
  - Diarrhoea [Unknown]
  - Asthenia [Unknown]
  - Quality of life decreased [Unknown]
  - Malaise [Recovering/Resolving]
  - Palpitations [Unknown]
  - Myelodysplastic syndrome [Unknown]
  - Nausea [Not Recovered/Not Resolved]
  - Weight decreased [Recovering/Resolving]
  - Dyspnoea exertional [Unknown]
  - Staphylococcal infection [Unknown]
  - Toxicity to various agents [Not Recovered/Not Resolved]
  - Feeding disorder [Unknown]
  - Dyspnoea [Unknown]
  - Hypothyroidism [Unknown]
  - General physical health deterioration [Unknown]
  - Feeling abnormal [Unknown]
  - Fatigue [Unknown]

NARRATIVE: CASE EVENT DATE: 20150819
